FAERS Safety Report 14094410 (Version 3)
Quarter: 2017Q4

REPORT INFORMATION
  Report Type: Spontaneous
  Country: RO (occurrence: RO)
  Receive Date: 20171016
  Receipt Date: 20171023
  Transmission Date: 20180321
  Serious: Yes (Congenital Anomaly)
  Sender: FDA-Public Use
  Company Number: RO-TEVA-814459ISR

PATIENT
  Age: 5 Year
  Sex: Male

DRUGS (4)
  1. ZIDOVUDINE. [Suspect]
     Active Substance: ZIDOVUDINE
     Route: 064
  2. LAMIVUDINE AND ZIDOVUDINE [Suspect]
     Active Substance: LAMIVUDINE\ZIDOVUDINE
     Indication: ANTIRETROVIRAL THERAPY
     Route: 065
  3. LAMIVUDINE. [Suspect]
     Active Substance: LAMIVUDINE
     Route: 064
  4. NEVIRAPINE. [Suspect]
     Active Substance: NEVIRAPINE
     Route: 064

REACTIONS (2)
  - Dandy-Walker syndrome [Not Recovered/Not Resolved]
  - Foetal exposure during pregnancy [Unknown]
